FAERS Safety Report 7894788-5 (Version None)
Quarter: 2011Q4

REPORT INFORMATION
  Report Type: 
  Country: None (occurrence: None)
  Receive Date: 20111102
  Receipt Date: 20111026
  Transmission Date: 20120403
  Serious: Yes (Hospitalization, Other)
  Sender: FDA-Public Use
  Company Number: 2011SP025633

PATIENT
  Age: 27 Year
  Sex: Female
  Weight: 68.0396 kg

DRUGS (5)
  1. NUVARING [Suspect]
     Indication: MENORRHAGIA
  2. NUVARING [Suspect]
     Indication: ENDOMETRIOSIS
  3. COUMADIN [Suspect]
     Indication: ANTICOAGULANT THERAPY
     Dates: start: 20090620, end: 20100101
  4. TOPICAL STEROID [Concomitant]
  5. MULTI-VITAMIN [Concomitant]

REACTIONS (47)
  - PAIN [None]
  - MIGRAINE [None]
  - TRICUSPID VALVE INCOMPETENCE [None]
  - INTERNATIONAL NORMALISED RATIO DECREASED [None]
  - TRANSAMINASES INCREASED [None]
  - ALOPECIA [None]
  - UPPER RESPIRATORY TRACT INFECTION [None]
  - VAGINAL DISCHARGE [None]
  - PARAESTHESIA [None]
  - HEPATOMEGALY [None]
  - ANXIETY [None]
  - MENOMETRORRHAGIA [None]
  - MITRAL VALVE INCOMPETENCE [None]
  - MUSCULOSKELETAL PAIN [None]
  - PULMONARY INFARCTION [None]
  - CARDIAC DISORDER [None]
  - HYPOAESTHESIA [None]
  - CARPAL TUNNEL SYNDROME [None]
  - VENTRICULAR HYPOKINESIA [None]
  - VENTRICULAR HYPERKINESIA [None]
  - HAEMOPTYSIS [None]
  - UTERINE HAEMORRHAGE [None]
  - HEPATIC CONGESTION [None]
  - POOR QUALITY SLEEP [None]
  - INCORRECT DRUG ADMINISTRATION DURATION [None]
  - VAGINAL INFLAMMATION [None]
  - WHITE BLOOD CELL COUNT INCREASED [None]
  - HYPOXIA [None]
  - FATIGUE [None]
  - ARRHYTHMIA [None]
  - PULMONARY HYPERTENSION [None]
  - ABDOMINAL PAIN LOWER [None]
  - CORONARY ARTERY DISEASE [None]
  - MYOCARDIAL ISCHAEMIA [None]
  - PULMONARY EMBOLISM [None]
  - MYOCARDIAL INFARCTION [None]
  - HEADACHE [None]
  - HEART RATE IRREGULAR [None]
  - VISUAL IMPAIRMENT [None]
  - DILATATION VENTRICULAR [None]
  - PLEURISY [None]
  - TACHYCARDIA [None]
  - HYPERCOAGULATION [None]
  - DYSPNOEA [None]
  - PALPITATIONS [None]
  - NAUSEA [None]
  - GOITRE [None]
